FAERS Safety Report 24623728 (Version 2)
Quarter: 2024Q4

REPORT INFORMATION
  Report Type: Spontaneous
  Country: CN (occurrence: CN)
  Receive Date: 20241115
  Receipt Date: 20241127
  Transmission Date: 20250115
  Serious: Yes (Hospitalization, Other)
  Sender: ORGANON
  Company Number: CN-ORGANON-O2411CHN000911

PATIENT
  Age: 59 Year
  Sex: Female
  Weight: 39.5 kg

DRUGS (8)
  1. FOSAMAX [Suspect]
     Active Substance: ALENDRONATE SODIUM
     Indication: Osteoporosis
     Dosage: 70 MILLIGRAM, ONCE WEEKLY
     Route: 048
     Dates: start: 20230326, end: 20230326
  2. FOSAMAX [Suspect]
     Active Substance: ALENDRONATE SODIUM
     Dosage: 70 MILLIGRAM, ONCE WEEKLY
     Route: 048
     Dates: start: 20230402, end: 20230402
  3. FOSAMAX [Suspect]
     Active Substance: ALENDRONATE SODIUM
     Dosage: 70 MILLIGRAM, ONCE WEEKLY
     Route: 048
     Dates: start: 20230408, end: 20230408
  4. FOSAMAX [Suspect]
     Active Substance: ALENDRONATE SODIUM
     Dosage: 70 MILLIGRAM, ONCE WEEKLY
     Route: 048
     Dates: start: 20230416, end: 20230416
  5. MINODRONIC ACID [Suspect]
     Active Substance: MINODRONIC ACID
     Indication: Osteoporosis postmenopausal
     Dosage: UNKNOWN
     Route: 048
     Dates: start: 20230326, end: 20230326
  6. MINODRONIC ACID [Suspect]
     Active Substance: MINODRONIC ACID
     Dosage: UNKNOWN
     Route: 048
     Dates: start: 20230402, end: 20230402
  7. MINODRONIC ACID [Suspect]
     Active Substance: MINODRONIC ACID
     Dosage: UNKNOWN
     Route: 048
     Dates: start: 20230408, end: 20230408
  8. MINODRONIC ACID [Suspect]
     Active Substance: MINODRONIC ACID
     Dosage: UNKNOWN
     Route: 048
     Dates: start: 20230416, end: 20230416

REACTIONS (7)
  - Chronic gastritis [Not Recovered/Not Resolved]
  - Gastritis [Recovered/Resolved]
  - Arteriosclerosis coronary artery [Unknown]
  - Marasmus [Unknown]
  - Gastrooesophageal reflux disease [Recovered/Resolved]
  - Duodenogastric reflux [Not Recovered/Not Resolved]
  - Helicobacter infection [Not Recovered/Not Resolved]

NARRATIVE: CASE EVENT DATE: 20230414
